FAERS Safety Report 6338795-2 (Version None)
Quarter: 2009Q3

REPORT INFORMATION
  Report Type: 
  Country: None (occurrence: None)
  Receive Date: 20090903
  Receipt Date: 20090826
  Transmission Date: 20100115
  Serious: Yes (Hospitalization, Other)
  Sender: FDA-Public Use
  Company Number: US-JNJFOC-20090808823

PATIENT
  Sex: Female
  Weight: 52.16 kg

DRUGS (9)
  1. DURAGESIC-100 [Suspect]
     Indication: BACK PAIN
     Route: 062
  2. LOTREL [Concomitant]
     Indication: HYPERTENSION
     Dosage: 10-20 MG
     Route: 048
  3. LASIX [Concomitant]
     Indication: HYPERTENSION
     Route: 048
  4. ZANTAC [Concomitant]
     Indication: GASTRIC ULCER
     Route: 048
  5. CELEBREX [Concomitant]
     Indication: OSTEOPOROSIS
     Route: 048
  6. TYLENOL W/ CODEINE [Concomitant]
     Indication: PAIN
     Route: 048
  7. XANAX [Concomitant]
     Indication: NEURALGIA
     Route: 048
  8. METHOTREXATE [Concomitant]
     Indication: OSTEOARTHRITIS
     Route: 048
  9. ZANAFLEX [Concomitant]
     Indication: MUSCLE SPASMS
     Route: 048

REACTIONS (9)
  - ANXIETY [None]
  - APPLICATION SITE ULCER [None]
  - BACK PAIN [None]
  - BLOOD CHOLESTEROL INCREASED [None]
  - DEVICE ADHESION ISSUE [None]
  - GASTRIC ULCER [None]
  - INCORRECT ROUTE OF DRUG ADMINISTRATION [None]
  - OSTEOPOROSIS [None]
  - WRONG TECHNIQUE IN DRUG USAGE PROCESS [None]
